FAERS Safety Report 18230462 (Version 1)
Quarter: 2020Q3

REPORT INFORMATION
  Report Type: Spontaneous
  Country: FR (occurrence: FR)
  Receive Date: 20200904
  Receipt Date: 20200904
  Transmission Date: 20201103
  Serious: Yes (Death)
  Sender: FDA-Public Use
  Company Number: FR-TEVA-2020-FR-1821794

PATIENT
  Age: 58 Year
  Sex: Male
  Weight: 82 kg

DRUGS (10)
  1. IFOSFAMIDE. [Suspect]
     Active Substance: IFOSFAMIDE
     Indication: B-CELL LYMPHOMA
     Dosage: 1500MG/M2
     Route: 041
     Dates: start: 201904, end: 201907
  2. CISPLATINE [Suspect]
     Active Substance: CISPLATIN
     Indication: B-CELL LYMPHOMA
     Dosage: 100MG/M2
     Route: 041
     Dates: start: 201901, end: 201902
  3. METHOTREXATE. [Suspect]
     Active Substance: METHOTREXATE
     Indication: B-CELL LYMPHOMA
     Route: 041
     Dates: start: 2018, end: 2018
  4. VINCRISTINE (SULFATE DE) [Suspect]
     Active Substance: VINCRISTINE SULFATE
     Indication: B-CELL LYMPHOMA
     Dosage: 1.4MG/M2
     Route: 041
     Dates: start: 2018, end: 2018
  5. CYCLOPHOSPHAMIDE. [Suspect]
     Active Substance: CYCLOPHOSPHAMIDE
     Indication: B-CELL LYMPHOMA
     Dosage: 750MG/M2
     Route: 041
     Dates: start: 2018, end: 2018
  6. RITUXIMAB ((MAMMIFERE/HAMSTER/CELLULES CHO)) [Suspect]
     Active Substance: RITUXIMAB
     Indication: B-CELL LYMPHOMA
     Dosage: 375MG/M2
     Route: 041
     Dates: start: 2018, end: 201907
  7. FLUDARABINE (PHOSPHATE DE) [Suspect]
     Active Substance: FLUDARABINE PHOSPHATE
     Indication: B-CELL LYMPHOMA
     Dosage: 90MG/M2
     Route: 041
     Dates: start: 20190703, end: 20190705
  8. DOXORUBICINE [Suspect]
     Active Substance: DOXORUBICIN
     Indication: B-CELL LYMPHOMA
     Dosage: 50MG/M2
     Route: 041
     Dates: start: 2018, end: 2018
  9. ETOPOSIDE. [Suspect]
     Active Substance: ETOPOSIDE
     Indication: B-CELL LYMPHOMA
     Dosage: 300MG/M2
     Route: 041
     Dates: start: 201904, end: 201907
  10. YESCARTA [Suspect]
     Active Substance: AXICABTAGENE CILOLEUCEL
     Indication: B-CELL LYMPHOMA
     Route: 041
     Dates: start: 20190708, end: 20190708

REACTIONS (1)
  - Acute myeloid leukaemia [Fatal]

NARRATIVE: CASE EVENT DATE: 20191009
